FAERS Safety Report 7205062-4 (Version None)
Quarter: 2010Q4

REPORT INFORMATION
  Report Type: 
  Country: None (occurrence: None)
  Receive Date: 20101230
  Receipt Date: 20101228
  Transmission Date: 20110411
  Serious: Yes (Death, Hospitalization, Other)
  Sender: FDA-Public Use
  Company Number: US-ELI_LILLY_AND_COMPANY-US201011006605

PATIENT
  Sex: Female

DRUGS (4)
  1. ZYPREXA [Suspect]
     Indication: DEPRESSION
     Dosage: 5 MG, UNK
  2. ZYPREXA [Suspect]
     Dosage: 10 MG, UNK
     Dates: start: 20090801
  3. ZYPREXA [Suspect]
     Dosage: 20 MG, UNK
     Dates: end: 20091001
  4. LAMICTAL [Concomitant]

REACTIONS (10)
  - ABNORMAL BEHAVIOUR [None]
  - BRAIN INJURY [None]
  - COMPLETED SUICIDE [None]
  - OFF LABEL USE [None]
  - PANIC ATTACK [None]
  - POST-TRAUMATIC STRESS DISORDER [None]
  - PSYCHOTIC DISORDER [None]
  - STRESS [None]
  - SUICIDAL BEHAVIOUR [None]
  - VISUAL IMPAIRMENT [None]
